FAERS Safety Report 10498583 (Version 1)
Quarter: 2014Q3

REPORT INFORMATION
  Report Type: Spontaneous
  Country: US (occurrence: None)
  Receive Date: 20140815
  Receipt Date: 20140815
  Transmission Date: 20150326
  Serious: Yes (Other)
  Sender: FDA-Public Use
  Company Number: ADR-2013-01892

PATIENT
  Age: 63 Year
  Sex: Male

DRUGS (4)
  1. FENTANYL. [Suspect]
     Active Substance: FENTANYL
  2. CLONIDINE. [Suspect]
     Active Substance: CLONIDINE
  3. BACLOFEN. [Suspect]
     Active Substance: BACLOFEN
     Indication: SPINAL PAIN
  4. HYDROMORPHONE INTRATHECAL [Suspect]
     Active Substance: HYDROMORPHONE

REACTIONS (6)
  - Drug withdrawal syndrome [None]
  - Hyperhidrosis [None]
  - Nausea [None]
  - Pain [None]
  - Chills [None]
  - Vomiting [None]
